FAERS Safety Report 21271309 (Version 1)
Quarter: 2022Q3

REPORT INFORMATION
  Report Type: Spontaneous
  Country: FR (occurrence: FR)
  Receive Date: 20220830
  Receipt Date: 20220830
  Transmission Date: 20221027
  Serious: Yes (Life-Threatening, Other)
  Sender: FDA-Public Use
  Company Number: None

PATIENT

DRUGS (4)
  1. LAMOTRIGINE [Suspect]
     Active Substance: LAMOTRIGINE
     Indication: Poisoning deliberate
     Dosage: 1000 MG (10 TABLETS OF 100 MG)
     Route: 048
     Dates: start: 20220717, end: 20220717
  2. TERALITHE [Suspect]
     Active Substance: LITHIUM CARBONATE
     Indication: Poisoning deliberate
     Dosage: 10 DF
     Route: 048
     Dates: start: 20220717, end: 20220717
  3. ACETAMINOPHEN\BELLADONNA LEAF\CAFFEINE\OPIUM [Suspect]
     Active Substance: ACETAMINOPHEN\BELLADONNA LEAF\CAFFEINE\OPIUM
     Indication: Poisoning deliberate
     Dosage: 4 DF
     Route: 048
     Dates: start: 20220717, end: 20220717
  4. MIRTAZAPINE [Suspect]
     Active Substance: MIRTAZAPINE
     Indication: Poisoning deliberate
     Dosage: 150 MG (10 TABLETS OF 15 MG)
     Route: 048
     Dates: start: 20220717, end: 20220717

REACTIONS (5)
  - Acute kidney injury [Recovered/Resolved]
  - Shock [Recovered/Resolved]
  - Hyperlactacidaemia [Recovered/Resolved]
  - Coma [Recovered/Resolved]
  - Intentional overdose [Recovered/Resolved]

NARRATIVE: CASE EVENT DATE: 20220717
